FAERS Safety Report 6851865-5 (Version None)
Quarter: 2010Q3

REPORT INFORMATION
  Report Type: 
  Country: None (occurrence: None)
  Receive Date: 20100717
  Receipt Date: 20071030
  Transmission Date: 20110219
  Serious: No
  Sender: FDA-Public Use
  Company Number: US-PFIZER INC-2007093753

PATIENT
  Age: 64 Year
  Sex: Female
  Weight: 54.5 kg

DRUGS (4)
  1. CHANTIX [Suspect]
     Indication: SMOKING CESSATION THERAPY
     Dates: start: 20071025
  2. METOPROLOL [Concomitant]
     Indication: HYPERTENSION
  3. ASPIRIN [Concomitant]
  4. VITAMINS [Concomitant]

REACTIONS (4)
  - ABDOMINAL DISTENSION [None]
  - DIARRHOEA [None]
  - MIDDLE INSOMNIA [None]
  - NAUSEA [None]
